FAERS Safety Report 12230455 (Version 1)
Quarter: 2016Q2

REPORT INFORMATION
  Report Type: Spontaneous
  Country: US (occurrence: US)
  Receive Date: 20160401
  Receipt Date: 20160401
  Transmission Date: 20160815
  Serious: No
  Sender: FDA-Public Use
  Company Number: US-WATSON-2016-00819

PATIENT
  Sex: Female

DRUGS (1)
  1. ESTRADIOL (WATSON LABORATORIES) [Suspect]
     Active Substance: ESTRADIOL
     Indication: HORMONE LEVEL ABNORMAL
     Dosage: 2 MG, QHS
     Route: 048
     Dates: start: 20140825

REACTIONS (5)
  - Vulvovaginal dryness [Unknown]
  - Alopecia [Unknown]
  - Emotional disorder [Unknown]
  - Libido decreased [Unknown]
  - Urticaria [Unknown]
